FAERS Safety Report 9044045 (Version 1)
Quarter: 2013Q1

REPORT INFORMATION
  Report Type: Report from Study
  Country: US (occurrence: US)
  Receive Date: 20130130
  Receipt Date: 20130130
  Transmission Date: 20140127
  Serious: No
  Sender: FDA-Public Use
  Company Number: US-ABBOTT-12P-163-0954472-00

PATIENT
  Age: 74 Year
  Sex: Female

DRUGS (10)
  1. HUMIRA 40 MG/0.8 ML PEN [Suspect]
     Indication: CROHN^S DISEASE
     Dosage: LOADING DOSE
     Dates: start: 20120612
  2. HUMIRA 40 MG/0.8 ML PEN [Suspect]
     Dates: start: 20120626
  3. PANTOPRAZOLE [Concomitant]
     Indication: GASTROOESOPHAGEAL REFLUX DISEASE
     Dosage: IN THE MORNING
  4. CARAFATE [Concomitant]
     Indication: PRODUCT USED FOR UNKNOWN INDICATION
  5. LOVASTATIN [Concomitant]
     Indication: BLOOD CHOLESTEROL INCREASED
  6. MAXZIDE [Concomitant]
     Indication: BLOOD PRESSURE
     Dosage: 37.5/25MG IN THE MORNING
  7. LEVOTHYROXINE [Concomitant]
     Indication: HYPOTHYROIDISM
  8. VICODIN [Concomitant]
     Indication: PAIN
  9. AMLODIPINE [Concomitant]
     Indication: BLOOD PRESSURE
  10. ATENOLOL [Concomitant]
     Indication: BLOOD PRESSURE

REACTIONS (2)
  - Wrong technique in drug usage process [Recovered/Resolved]
  - Drug dose omission [Recovered/Resolved]
